FAERS Safety Report 8036357-2 (Version None)
Quarter: 2012Q1

REPORT INFORMATION
  Report Type: 
  Country: None (occurrence: None)
  Receive Date: 20120111
  Receipt Date: 20120104
  Transmission Date: 20120608
  Serious: Yes (Hospitalization)
  Sender: FDA-Public Use
  Company Number: IT-BAYER-2012-001124

PATIENT
  Sex: Male

DRUGS (1)
  1. KETOPROFEN [Suspect]

REACTIONS (4)
  - ANAEMIA [None]
  - EROSIVE OESOPHAGITIS [None]
  - INTERNATIONAL NORMALISED RATIO INCREASED [None]
  - GASTRITIS EROSIVE [None]
